FAERS Safety Report 15507603 (Version 2)
Quarter: 2018Q4

REPORT INFORMATION
  Report Type: Spontaneous
  Country: GB (occurrence: GB)
  Receive Date: 20181016
  Receipt Date: 20181113
  Transmission Date: 20190205
  Serious: Yes (Death)
  Sender: FDA-Public Use
  Company Number: GB-ALLERGAN-1849297US

PATIENT
  Age: 72 Year
  Sex: Female
  Weight: 53 kg

DRUGS (1)
  1. CEFTAZIDIME;AVIBACTAM - BP [Suspect]
     Active Substance: AVIBACTAM SODIUM\CEFTAZIDIME
     Indication: KLEBSIELLA INFECTION
     Dosage: 2.5 G, 3X DAY
     Route: 042
     Dates: start: 20180615

REACTIONS (1)
  - General physical health deterioration [Fatal]
